FAERS Safety Report 9063551 (Version 1)
Quarter: 2013Q1

REPORT INFORMATION
  Report Type: Report from Study
  Country: US (occurrence: US)
  Receive Date: 20130131
  Receipt Date: 20130131
  Transmission Date: 20140127
  Serious: No
  Sender: FDA-Public Use
  Company Number: US-ABBOTT-12P-163-1013431-00

PATIENT
  Sex: Female

DRUGS (6)
  1. HUMIRA [Suspect]
     Indication: RHEUMATOID ARTHRITIS
     Dates: start: 201207
  2. GABAPENTIN [Concomitant]
     Indication: PRODUCT USED FOR UNKNOWN INDICATION
  3. LESCOL [Concomitant]
     Indication: BLOOD CHOLESTEROL INCREASED
  4. LEVOTHYROID [Concomitant]
     Indication: HYPOTHYROIDISM
  5. UNKNOWN PAIN MEDICATION [Concomitant]
     Indication: BACK PAIN
  6. ADVIL [Concomitant]
     Indication: PRODUCT USED FOR UNKNOWN INDICATION

REACTIONS (1)
  - Injection site erythema [Not Recovered/Not Resolved]
